FAERS Safety Report 7844315-3 (Version None)
Quarter: 2011Q4

REPORT INFORMATION
  Report Type: 
  Country: None (occurrence: None)
  Receive Date: 20111025
  Receipt Date: 20111020
  Transmission Date: 20120403
  Serious: Yes (Hospitalization)
  Sender: FDA-Public Use
  Company Number: US-B.I. PHARMACEUTICALS,INC./RIDGEFIELD-2011-BP-19862BP

PATIENT
  Sex: Male

DRUGS (23)
  1. INSULIN [Concomitant]
     Indication: DIABETES MELLITUS
     Dates: start: 20110701
  2. NEXIUM [Concomitant]
     Indication: GASTROOESOPHAGEAL REFLUX DISEASE
     Dosage: 40 MG
     Route: 048
  3. MORPHINE [Concomitant]
     Indication: PAIN IN EXTREMITY
     Route: 048
  4. AMBIEN [Concomitant]
     Indication: INSOMNIA
     Route: 048
  5. METFORMIN HCL [Concomitant]
     Indication: DIABETES MELLITUS
     Route: 048
     Dates: end: 20110701
  6. ENDUR-VM [Concomitant]
  7. NEXIUM [Concomitant]
  8. LANTUS [Concomitant]
     Dosage: 28 U
     Route: 058
  9. MORPHINE CONTIN [Concomitant]
     Indication: PAIN
     Route: 048
  10. ELAVIL [Concomitant]
     Indication: NEUROPATHY PERIPHERAL
     Route: 048
  11. MORPHINE [Concomitant]
  12. ENDUR-C [Concomitant]
  13. ENDUR-ACIN [Concomitant]
  14. GLYBURIDE [Concomitant]
     Indication: DIABETES MELLITUS
     Route: 048
     Dates: end: 20110701
  15. LEVOTHYROXINE SODIUM [Concomitant]
     Indication: HYPOTHYROIDISM
     Dosage: 1.75 MG
     Route: 048
  16. WARFARIN SODIUM [Concomitant]
  17. PROVIGIL [Concomitant]
     Indication: DEPRESSED LEVEL OF CONSCIOUSNESS
  18. TESTOSTERONE [Concomitant]
  19. OSTER-BI [Concomitant]
     Indication: ARTHROPATHY
  20. PRADAXA [Suspect]
     Indication: ATRIAL FIBRILLATION
     Dosage: 300 MG
     Route: 048
     Dates: end: 20110730
  21. FISH OIL [Concomitant]
  22. CAL-MAG [Concomitant]
  23. SYNTHROID [Concomitant]
     Dosage: 200 MCG

REACTIONS (7)
  - PULMONARY EMBOLISM [None]
  - MALAISE [None]
  - PULMONARY MASS [None]
  - CHEST PAIN [None]
  - WEIGHT DECREASED [None]
  - WEGENER'S GRANULOMATOSIS [None]
  - DECREASED APPETITE [None]
